FAERS Safety Report 21091360 (Version 2)
Quarter: 2023Q2

REPORT INFORMATION
  Report Type: Report from Study
  Country: CA (occurrence: CA)
  Receive Date: 20220716
  Receipt Date: 20230503
  Transmission Date: 20230721
  Serious: Yes (Other)
  Sender: FDA-Public Use
  Company Number: CA-NOVARTISPH-NVSC2022CA158090

PATIENT
  Age: 68 Year
  Sex: Male

DRUGS (2)
  1. HYRIMOZ [Suspect]
     Active Substance: ADALIMUMAB-ADAZ
     Indication: Crohn^s disease
     Dosage: 40 MG, QW
     Route: 058
     Dates: start: 20220219
  2. HUMIRA [Concomitant]
     Active Substance: ADALIMUMAB
     Indication: Product used for unknown indication
     Dosage: UNK
     Route: 065

REACTIONS (8)
  - CNS ventriculitis [Unknown]
  - Precancerous skin lesion [Recovered/Resolved]
  - Skin cancer [Unknown]
  - Diarrhoea [Recovering/Resolving]
  - Induration [Recovering/Resolving]
  - Bowel movement irregularity [Unknown]
  - Procedural site reaction [Unknown]
  - Abdominal pain lower [Unknown]

NARRATIVE: CASE EVENT DATE: 20220101
